FAERS Safety Report 7503020-3 (Version None)
Quarter: 2011Q2

REPORT INFORMATION
  Report Type: 
  Country: None (occurrence: None)
  Receive Date: 20110525
  Receipt Date: 20101001
  Transmission Date: 20111010
  Serious: No
  Sender: FDA-Public Use
  Company Number: US-NOVEN-ALL1-2010-05164

PATIENT
  Sex: Female
  Weight: 33.56 kg

DRUGS (4)
  1. KLONOPIN [Concomitant]
     Dosage: UNK, UNKNOWN
     Route: 048
  2. DAYTRANA [Suspect]
     Dosage: 10 MG, 1X/DAY:QD
     Route: 062
     Dates: start: 20100801
  3. ANASPAZ [Concomitant]
     Dosage: UNK MG, UNKNOWN
     Route: 048
  4. DEPAKOTE [Concomitant]
     Dosage: UNK MG, UNKNOWN
     Route: 048

REACTIONS (3)
  - INCORRECT STORAGE OF DRUG [None]
  - NO ADVERSE EVENT [None]
  - PRODUCT QUALITY ISSUE [None]
